FAERS Safety Report 8262880-1 (Version None)
Quarter: 2012Q2

REPORT INFORMATION
  Report Type: 
  Country: None (occurrence: None)
  Receive Date: 20120405
  Receipt Date: 20120326
  Transmission Date: 20120825
  Serious: Yes (Other)
  Sender: FDA-Public Use
  Company Number: CA-GLAXOSMITHKLINE-A0972052A

PATIENT

DRUGS (14)
  1. OXAZEPAM [Suspect]
     Route: 064
  2. PANTOPRAZOLE [Suspect]
     Route: 064
  3. MULTI-VITAMINS [Suspect]
     Indication: HYPEREMESIS GRAVIDARUM
     Route: 064
  4. HYDROXYZINE [Suspect]
     Indication: HYPEREMESIS GRAVIDARUM
     Dosage: 25MG FOUR TIMES PER DAY
     Route: 064
  5. HUMULIN R [Suspect]
     Route: 064
  6. SUMATRIPTAN [Suspect]
     Route: 064
  7. INSULIN ASPART [Suspect]
     Route: 064
  8. ONDANSETRON [Suspect]
     Indication: HYPEREMESIS GRAVIDARUM
     Route: 064
  9. ASPIRIN [Suspect]
     Route: 064
  10. DIPHENHYDRAMINE HCL [Suspect]
     Indication: HYPEREMESIS GRAVIDARUM
     Dosage: 50MG FOUR TIMES PER DAY
     Route: 064
  11. METOCLOPRAMIDE [Suspect]
     Indication: HYPEREMESIS GRAVIDARUM
     Route: 064
  12. THIAMINE HCL [Suspect]
     Indication: HYPEREMESIS GRAVIDARUM
     Route: 064
  13. COSYNTROPIN [Suspect]
     Route: 064
  14. HYDROMORPHONE HCL [Suspect]
     Route: 064

REACTIONS (3)
  - FOETAL EXPOSURE DURING PREGNANCY [None]
  - FOETAL GROWTH RESTRICTION [None]
  - HYPOGLYCAEMIA [None]
